FAERS Safety Report 9011807 (Version 1)
Quarter: 2013Q1

REPORT INFORMATION
  Report Type: Spontaneous
  Country: US (occurrence: US)
  Receive Date: 20130113
  Receipt Date: 20130113
  Transmission Date: 20140127
  Serious: Yes (Other)
  Sender: FDA-Public Use
  Company Number: US-009507513-1301USA004275

PATIENT
  Sex: Female

DRUGS (13)
  1. MONTELUKAST SODIUM [Suspect]
  2. FLEXERIL [Suspect]
     Indication: PRODUCT USED FOR UNKNOWN INDICATION
  3. ATROVENT [Suspect]
  4. SEROQUEL [Suspect]
  5. BUSPAR [Suspect]
  6. NEXIUM [Suspect]
  7. ABILIFY [Suspect]
  8. LEVOTHROID [Suspect]
  9. TRAMADOL HYDROCHLORIDE [Suspect]
  10. EFFEXOR XR [Suspect]
  11. LITHIUM CARBONATE [Suspect]
  12. NEURONTIN [Suspect]
     Route: 065
  13. FLOVENT [Suspect]

REACTIONS (3)
  - Hypothyroidism [Unknown]
  - Drug interaction [Unknown]
  - Drug ineffective [Unknown]
